FAERS Safety Report 5765295-0 (Version None)
Quarter: 2008Q2

REPORT INFORMATION
  Report Type: 
  Country: None (occurrence: None)
  Receive Date: 20080609
  Receipt Date: 20080609
  Transmission Date: 20081010
  Serious: Yes (Hospitalization)
  Sender: FDA-Public Use
  Company Number: None

PATIENT
  Age: 72 Year
  Sex: Male
  Weight: 72.1219 kg

DRUGS (12)
  1. CETUXIMAB 760 MG IV X 1 THEN 475 MG IV THEREAFTER [Suspect]
     Indication: NON-SMALL CELL LUNG CANCER
     Dosage: WEEKLY IV
     Route: 042
     Dates: start: 20071123, end: 20080521
  2. CARBOPLATIN [Suspect]
     Indication: NON-SMALL CELL LUNG CANCER
     Dosage: EVERY 3 WEEKS IV
     Route: 042
     Dates: start: 20080227, end: 20080416
  3. TAXOL [Suspect]
     Indication: NON-SMALL CELL LUNG CANCER
     Dosage: EVERY 3 WEEKS IV
     Route: 042
     Dates: start: 20080227, end: 20080416
  4. BENEDRYL [Concomitant]
  5. METOPROLOL [Concomitant]
  6. BENZONATATE [Concomitant]
  7. ALBUTEROL [Concomitant]
  8. SPIRIVA [Concomitant]
  9. THEOPHYLLINE [Concomitant]
  10. PRILOSEC [Concomitant]
  11. CARDURA [Concomitant]
  12. SIMVASTATIN [Concomitant]

REACTIONS (4)
  - ARRHYTHMIA [None]
  - ATRIAL FIBRILLATION [None]
  - EJECTION FRACTION DECREASED [None]
  - TACHYCARDIA [None]
